FAERS Safety Report 6487676-2 (Version None)
Quarter: 2009Q4

REPORT INFORMATION
  Report Type: 
  Country: None (occurrence: None)
  Receive Date: 20091210
  Receipt Date: 20091201
  Transmission Date: 20100525
  Serious: Yes (Other)
  Sender: FDA-Public Use
  Company Number: GB-ELI_LILLY_AND_COMPANY-GB200905004077

PATIENT
  Sex: Female

DRUGS (6)
  1. BYETTA [Suspect]
     Indication: HYPERGLYCAEMIA
     Dosage: 5 UG, 2/D
     Route: 058
     Dates: start: 20090304, end: 20090401
  2. BYETTA [Suspect]
     Dosage: 5 UG, DAILY (1/D)
     Route: 065
     Dates: start: 20090401, end: 20090501
  3. DICLOFENAC [Concomitant]
     Indication: ANALGESIC THERAPY
     Dosage: 50 MG, UNK
     Route: 048
     Dates: end: 20090515
  4. FUROSEMIDE [Concomitant]
     Dosage: 40 MG, UNK
     Route: 048
     Dates: end: 20090515
  5. GLUCOPHAGE [Concomitant]
     Dosage: 500 MG, UNK
     Route: 048
     Dates: end: 20090515
  6. LEVOTHYROXINE SODIUM [Concomitant]
     Dosage: 10 MG, UNK
     Route: 048

REACTIONS (5)
  - BLOOD CREATININE INCREASED [None]
  - GLOMERULAR FILTRATION RATE DECREASED [None]
  - NEPHROPATHY TOXIC [None]
  - RENAL IMPAIRMENT [None]
  - WEIGHT DECREASED [None]
